FAERS Safety Report 7904006-7 (Version None)
Quarter: 2011Q4

REPORT INFORMATION
  Report Type: 
  Country: None (occurrence: None)
  Receive Date: 20111109
  Receipt Date: 20111031
  Transmission Date: 20120403
  Serious: Yes (Hospitalization)
  Sender: FDA-Public Use
  Company Number: US-ASTRAZENECA-2011SE65741

PATIENT
  Age: 71 Year
  Sex: Female
  Weight: 65.8 kg

DRUGS (15)
  1. MELOXICAM [Concomitant]
  2. LISINOPRIL [Concomitant]
  3. LOAZZA [Concomitant]
  4. KLORAM [Concomitant]
  5. SEROQUEL [Suspect]
     Indication: BIPOLAR I DISORDER
     Route: 048
     Dates: start: 20060101
  6. ESSIENT [Concomitant]
  7. PEREMERAM [Concomitant]
  8. EUSTERONE [Concomitant]
  9. YLONDA [Concomitant]
  10. SEROQUEL [Suspect]
     Indication: SLEEP DISORDER
     Route: 048
     Dates: start: 20060101
  11. SIMVASTATIN [Concomitant]
  12. NEXIUM [Suspect]
     Indication: DYSPEPSIA
     Route: 048
  13. CYMBALTA [Concomitant]
  14. LEVOTHYROXINE SODIUM [Concomitant]
  15. FIRAX [Concomitant]

REACTIONS (6)
  - WRONG TECHNIQUE IN DRUG USAGE PROCESS [None]
  - MALAISE [None]
  - CORONARY ARTERY DISEASE [None]
  - OFF LABEL USE [None]
  - FATIGUE [None]
  - DRUG EFFECT INCREASED [None]
